FAERS Safety Report 8415530-5 (Version None)
Quarter: 2012Q2

REPORT INFORMATION
  Report Type: 
  Country: None (occurrence: None)
  Receive Date: 20120530
  Receipt Date: 20120524
  Transmission Date: 20120825
  Serious: Yes (Hospitalization)
  Sender: FDA-Public Use
  Company Number: 2012TP000159

PATIENT
  Age: 42 Year
  Sex: Female

DRUGS (1)
  1. LIDODERM [Suspect]
     Indication: BACK PAIN
     Dosage: ;1X; TOP
     Route: 061
     Dates: start: 20111101, end: 20120513

REACTIONS (7)
  - BURNS FOURTH DEGREE [None]
  - APPLICATION SITE REACTION [None]
  - THERMAL BURN [None]
  - SKIN DISCOLOURATION [None]
  - DERMATITIS [None]
  - INFECTION [None]
  - BLISTER [None]
